FAERS Safety Report 8771163 (Version 1)
Quarter: 2012Q4

REPORT INFORMATION
  Report Type: 
  Country: JP (occurrence: JP)
  Receive Date: 20120906
  Receipt Date: 20120906
  Transmission Date: 20130627
  Serious: Yes (Other)
  Sender: FDA-Public Use
  Company Number: JP-PFIZER INC-2012217503

PATIENT
  Age: 55 Year
  Sex: Male

DRUGS (2)
  1. CELECOX [Suspect]
     Indication: ARTHRITIS
     Dosage: UNK
     Route: 048
     Dates: start: 201107
  2. MIZORIBINE [Suspect]
     Indication: ARTHRITIS
     Dosage: UNK
     Route: 065
     Dates: start: 201107

REACTIONS (2)
  - Drug ineffective for unapproved indication [Recovering/Resolving]
  - SLE arthritis [Recovering/Resolving]
